FAERS Safety Report 21963024 (Version 1)
Quarter: 2023Q1

REPORT INFORMATION
  Report Type: Spontaneous
  Country: JP (occurrence: JP)
  Receive Date: 20230207
  Receipt Date: 20230207
  Transmission Date: 20230418
  Serious: Yes (Hospitalization)
  Sender: FDA-Public Use
  Company Number: JP-JNJFOC-20230206484

PATIENT
  Age: 54 Year
  Sex: Female

DRUGS (10)
  1. CONCERTA [Suspect]
     Active Substance: METHYLPHENIDATE HYDROCHLORIDE
     Indication: Attention deficit hyperactivity disorder
     Route: 048
  2. ESTRADIOL [Concomitant]
     Active Substance: ESTRADIOL
     Route: 065
  3. DYDROGESTERONE [Concomitant]
     Active Substance: DYDROGESTERONE
     Route: 048
  4. ATOMOXETINE HYDROCHLORIDE [Concomitant]
     Active Substance: ATOMOXETINE HYDROCHLORIDE
     Route: 048
  5. ARIPIPRAZOLE [Concomitant]
     Active Substance: ARIPIPRAZOLE
     Route: 065
  6. DULOXETINE HYDROCHLORIDE [Concomitant]
     Active Substance: DULOXETINE HYDROCHLORIDE
     Route: 048
  7. ACAMPROSATE CALCIUM [Concomitant]
     Active Substance: ACAMPROSATE CALCIUM
     Route: 048
  8. CLONAZEPAM [Concomitant]
     Active Substance: CLONAZEPAM
     Route: 048
  9. ZOPICLONE [Concomitant]
     Active Substance: ZOPICLONE
     Route: 048
  10. OXYGEN [Concomitant]
     Active Substance: OXYGEN
     Dosage: 2L/MIN
     Route: 055

REACTIONS (1)
  - Eosinophilic pneumonia acute [Recovering/Resolving]
